FAERS Safety Report 23411239 (Version 1)
Quarter: 2024Q1

REPORT INFORMATION
  Report Type: Spontaneous
  Country: FR (occurrence: FR)
  Receive Date: 20240117
  Receipt Date: 20240117
  Transmission Date: 20240410
  Serious: Yes (Hospitalization)
  Sender: FDA-Public Use
  Company Number: None

PATIENT
  Age: 76 Year
  Sex: Female
  Weight: 57 kg

DRUGS (8)
  1. AZITHROMYCIN [Suspect]
     Active Substance: AZITHROMYCIN
     Indication: Bronchitis
     Dosage: UNK
     Route: 048
     Dates: start: 20231211, end: 20231215
  2. ALLOPURINOL [Suspect]
     Active Substance: ALLOPURINOL
     Indication: Gouty arthritis
     Dosage: UNK
     Route: 048
     Dates: start: 20231205, end: 20231211
  3. COLCHICINE\OPIUM\TIEMONIUM METHYLSULFATE [Suspect]
     Active Substance: COLCHICINE\OPIUM\TIEMONIUM METHYLSULFATE
     Indication: Gouty arthritis
     Dosage: 1 DF, 1X/DAY
     Route: 048
     Dates: start: 20231110, end: 20231204
  4. AMIODARONE [Concomitant]
     Active Substance: AMIODARONE
  5. LAUROMACROGOL [Concomitant]
  6. POTASSIUM CHLORIDE [Concomitant]
     Active Substance: POTASSIUM CHLORIDE
  7. FLUINDIONE [Concomitant]
     Active Substance: FLUINDIONE
  8. FUROSEMIDE [Concomitant]
     Active Substance: FUROSEMIDE

REACTIONS (1)
  - Rash maculo-papular [Recovered/Resolved]

NARRATIVE: CASE EVENT DATE: 20231213
